FAERS Safety Report 10223994 (Version 2)
Quarter: 2014Q4

REPORT INFORMATION
  Report Type: Spontaneous
  Country: IT (occurrence: IT)
  Receive Date: 20140609
  Receipt Date: 20141001
  Transmission Date: 20150528
  Serious: Yes (Hospitalization)
  Sender: FDA-Public Use
  Company Number: IT-PFIZER INC-2014153735

PATIENT
  Age: 48 Year
  Sex: Female

DRUGS (4)
  1. XANAX [Suspect]
     Active Substance: ALPRAZOLAM
     Dosage: 20 ML, TOTAL
     Route: 048
     Dates: start: 20131212, end: 20131212
  2. ASPIRINA [Suspect]
     Active Substance: ASPIRIN
     Dosage: 3 DF, TOTAL
     Route: 048
     Dates: start: 20131212, end: 20131212
  3. ENTACT [Suspect]
     Active Substance: ESCITALOPRAM OXALATE
     Dosage: 15 ML, TOTAL
     Route: 048
     Dates: start: 20131212, end: 20131212
  4. ANAFRANIL [Suspect]
     Active Substance: CLOMIPRAMINE HYDROCHLORIDE
     Dosage: 3 DF, TOTAL
     Route: 048
     Dates: start: 20131212, end: 20131212

REACTIONS (4)
  - Psychomotor hyperactivity [Recovered/Resolved]
  - Drug abuse [Recovered/Resolved]
  - Abdominal pain upper [Recovered/Resolved]
  - Dyspepsia [Recovered/Resolved]

NARRATIVE: CASE EVENT DATE: 20131212
